FAERS Safety Report 7527821-0 (Version None)
Quarter: 2011Q2

REPORT INFORMATION
  Report Type: 
  Country: None (occurrence: None)
  Receive Date: 20110527
  Receipt Date: 20110518
  Transmission Date: 20111010
  Serious: Yes (Hospitalization)
  Sender: FDA-Public Use
  Company Number: UTC-007236

PATIENT
  Age: 79 Year
  Sex: Male
  Weight: 97.7 kg

DRUGS (9)
  1. REMODULIN [Suspect]
     Indication: PULMONARY ARTERIAL HYPERTENSION
     Dosage: 151.2 UG/KG (0.105 UG/KG,1 IN 1 MIN)
  2. TRACLEER [Concomitant]
  3. PANTOPRAZOL (PANTOPRAZOL SODIUM) [Concomitant]
  4. ACETYLSALICYLIC ACID SRT [Concomitant]
  5. THYREX (LEVOTHYROXINE SODIUM) [Concomitant]
  6. REVATIO [Concomitant]
  7. LASIX [Concomitant]
  8. APRENDNISOLON (PREDNISOLONE) [Concomitant]
  9. SPIRIVA [Concomitant]

REACTIONS (7)
  - GENERAL PHYSICAL HEALTH DETERIORATION [None]
  - PAIN [None]
  - DECREASED APPETITE [None]
  - INJECTION SITE ERYTHEMA [None]
  - HEADACHE [None]
  - INJECTION SITE SWELLING [None]
  - NAUSEA [None]
